FAERS Safety Report 8085814-1 (Version None)
Quarter: 2012Q1

REPORT INFORMATION
  Report Type: 
  Country: None (occurrence: None)
  Receive Date: 20120128
  Receipt Date: 20110419
  Transmission Date: 20120608
  Serious: No
  Sender: FDA-Public Use
  Company Number: US-ABBOTT-11P-163-0720121-00

PATIENT
  Sex: Female
  Weight: 86.26 kg

DRUGS (20)
  1. ALBUTEROL [Concomitant]
     Indication: ASTHMA
  2. OXYBUTYNIN [Concomitant]
     Indication: URINARY INCONTINENCE
  3. SPIRIVA [Concomitant]
     Indication: CHRONIC OBSTRUCTIVE PULMONARY DISEASE
  4. SYMBICORT [Concomitant]
     Indication: ASTHMA
  5. VITAMIN D [Concomitant]
     Indication: VITAMIN SUPPLEMENTATION
  6. ZOVIRAX [Concomitant]
     Indication: CANDIDIASIS
  7. DILTIAZEM HCL [Concomitant]
     Indication: TACHYCARDIA
  8. MULTIPLE VITAMINS [Concomitant]
     Indication: VITAMIN SUPPLEMENTATION
  9. NYSTATIN [Concomitant]
     Indication: CANDIDIASIS
  10. PREDNISONE TAB [Concomitant]
     Indication: RHEUMATOID ARTHRITIS
  11. ALBUTEROL [Concomitant]
     Indication: CHRONIC OBSTRUCTIVE PULMONARY DISEASE
  12. FOLIC ACID [Concomitant]
     Indication: VITAMIN SUPPLEMENTATION
  13. HUMIRA [Suspect]
     Indication: RHEUMATOID ARTHRITIS
     Dates: start: 20110228, end: 20110314
  14. BONIVA [Concomitant]
     Indication: OSTEOPOROSIS
  15. PERCOCET [Concomitant]
     Indication: PAIN
  16. CALCIUM [Concomitant]
     Indication: OSTEOPOROSIS
  17. FLEXERIL [Concomitant]
     Indication: RHEUMATOID ARTHRITIS
  18. MYCOLOG [Concomitant]
     Indication: PRODUCT USED FOR UNKNOWN INDICATION
  19. SYMBICORT [Concomitant]
     Indication: CHRONIC OBSTRUCTIVE PULMONARY DISEASE
  20. ZOCOR [Concomitant]
     Indication: BLOOD CHOLESTEROL INCREASED

REACTIONS (1)
  - JOINT SWELLING [None]
